FAERS Safety Report 19513088 (Version 1)
Quarter: 2021Q3

REPORT INFORMATION
  Report Type: Report from Study
  Country: MX (occurrence: MX)
  Receive Date: 20210709
  Receipt Date: 20210709
  Transmission Date: 20211014
  Serious: Yes (Death, Other)
  Sender: FDA-Public Use
  Company Number: MX-UCBSA-2021032835

PATIENT
  Sex: Female
  Weight: 50 kg

DRUGS (1)
  1. ROTIGOTINE [Suspect]
     Active Substance: ROTIGOTINE
     Indication: PARKINSON^S DISEASE
     Dosage: UNK
     Route: 062

REACTIONS (3)
  - Weight decreased [Unknown]
  - Neoplasm malignant [Fatal]
  - Musculoskeletal stiffness [Unknown]
